FAERS Safety Report 9225256 (Version 2)
Quarter: 2014Q1

REPORT INFORMATION
  Report Type: Spontaneous
  Country: US (occurrence: US)
  Receive Date: 20130411
  Receipt Date: 20140123
  Transmission Date: 20141002
  Serious: Yes (Other)
  Sender: FDA-Public Use
  Company Number: PHEH2013US005395

PATIENT
  Age: 37 Year
  Sex: Female
  Weight: 83.5 kg

DRUGS (10)
  1. EXTAVIA [Suspect]
     Indication: MULTIPLE SCLEROSIS
     Dosage: UNK UKN, UNK
     Route: 058
     Dates: start: 2010
  2. SOLUMEDROL [Concomitant]
     Dosage: UNK UKN, UNK
     Dates: start: 20130319
  3. CELEXA [Concomitant]
     Dosage: 20 DF, (IN TWO WEEKS)
     Dates: start: 20130318
  4. FLOMAX//TAMSULOSIN HYDROCHLORIDE [Concomitant]
     Dosage: 1 DF, DAILY
     Route: 048
     Dates: start: 20121004
  5. PAXIL [Concomitant]
     Dosage: 1 DF, DAILY
     Route: 048
     Dates: start: 20121004
  6. MULTIPLE VITAMINS [Concomitant]
     Dosage: 1 DF, DAILY
     Route: 048
  7. VITAMIIN C [Concomitant]
     Dosage: 1 DF, DAILY
     Route: 048
  8. VITAMIN D3 [Concomitant]
     Dosage: 1 DF, DAILY (5000 UNITS)
     Route: 048
  9. TYLENOL [Concomitant]
  10. VITAMIN B12 [Concomitant]
     Indication: VITAMIN B12 DEFICIENCY
     Dosage: 10000 IU, DAILY

REACTIONS (15)
  - Central nervous system lesion [Unknown]
  - Fall [Recovered/Resolved]
  - Urinary tract infection [Unknown]
  - Neurogenic bladder [Unknown]
  - Bladder disorder [Recovering/Resolving]
  - Nocturia [Recovering/Resolving]
  - Urinary hesitation [Recovering/Resolving]
  - Stress [Unknown]
  - Fine motor delay [Unknown]
  - Bradyphrenia [Recovering/Resolving]
  - Distractibility [Unknown]
  - Constipation [Unknown]
  - Gait disturbance [Unknown]
  - Malaise [Unknown]
  - Maternal exposure during pregnancy [Unknown]
